FAERS Safety Report 4617119-2 (Version None)
Quarter: 2005Q1

REPORT INFORMATION
  Report Type: 
  Country: None (occurrence: None)
  Receive Date: 20050323
  Receipt Date: 20050321
  Transmission Date: 20050727
  Serious: Yes (Other)
  Sender: FDA-Public Use
  Company Number: DE-MERCK-0503DEU00164

PATIENT
  Age: 67 Year
  Sex: Female

DRUGS (2)
  1. VIOXX [Suspect]
     Indication: PAIN
     Route: 048
     Dates: start: 20040801
  2. VIOXX [Suspect]
     Route: 048
     Dates: start: 20040601

REACTIONS (1)
  - CEREBROVASCULAR ACCIDENT [None]
